FAERS Safety Report 5497061-8 (Version None)
Quarter: 2007Q4

REPORT INFORMATION
  Report Type: 
  Country: None (occurrence: None)
  Receive Date: 20071018
  Receipt Date: 20070104
  Transmission Date: 20080405
  Serious: Yes (Other)
  Sender: FDA-Public Use
  Company Number: 2005049582

PATIENT
  Age: 22 Year
  Sex: Female

DRUGS (2)
  1. NEURONTIN [Suspect]
     Indication: IRRITABLE BOWEL SYNDROME
  2. ZELNORM [Concomitant]

REACTIONS (7)
  - ABDOMINAL PAIN [None]
  - DEPRESSED MOOD [None]
  - HAEMORRHAGE [None]
  - IRRITABLE BOWEL SYNDROME [None]
  - LOSS OF CONSCIOUSNESS [None]
  - MOUTH INJURY [None]
  - TOOTH INJURY [None]
